FAERS Safety Report 4807084-7 (Version None)
Quarter: 2005Q4

REPORT INFORMATION
  Report Type: 
  Country: None (occurrence: None)
  Receive Date: 20051020
  Receipt Date: 20051020
  Transmission Date: 20060501
  Serious: Yes (Hospitalization)
  Sender: FDA-Public Use
  Company Number: None

PATIENT
  Age: 54 Year
  Sex: Male
  Weight: 100.7 kg

DRUGS (6)
  1. ACARBOSE [Suspect]
  2. GEMFIBROZIL [Concomitant]
  3. ASPIRIN [Concomitant]
  4. TRAMADOL HCL [Concomitant]
  5. LISINOPRIL [Concomitant]
  6. SILDENAFIL CITRATE [Concomitant]

REACTIONS (1)
  - ABDOMINAL PAIN [None]
